FAERS Safety Report 11308305 (Version 1)
Quarter: 2015Q3

REPORT INFORMATION
  Report Type: Spontaneous
  Country: US (occurrence: US)
  Receive Date: 20150724
  Receipt Date: 20150724
  Transmission Date: 20151125
  Serious: Yes (Other)
  Sender: FDA-Public Use
  Company Number: US-ASTRAZENECA-2015SE70508

PATIENT
  Age: 49 Year
  Sex: Female
  Weight: 81.6 kg

DRUGS (7)
  1. SYMBICORT [Suspect]
     Active Substance: BUDESONIDE\FORMOTEROL FUMARATE DIHYDRATE
     Indication: LUNG DISORDER
     Dosage: 80/4.5 UG, ONE PUFF TWICE A DAY
     Route: 055
  2. BUT/ASA/CAFF [Concomitant]
     Active Substance: BUTALBITAL\CAFFEINE\SALICYLIC ACID
     Indication: MIGRAINE
     Dosage: AS REQUIRED
  3. OMEPRAZOLE. [Suspect]
     Active Substance: OMEPRAZOLE
     Indication: DYSPEPSIA
     Route: 048
     Dates: start: 2012
  4. SYMBICORT [Suspect]
     Active Substance: BUDESONIDE\FORMOTEROL FUMARATE DIHYDRATE
     Indication: COUGH
     Dosage: 80/4.5 UG, ONE PUFF TWICE A DAY
     Route: 055
  5. OMEPRAZOLE. [Suspect]
     Active Substance: OMEPRAZOLE
     Indication: DYSPEPSIA
     Route: 048
     Dates: start: 2012
  6. ANASTROZOLE. [Suspect]
     Active Substance: ANASTROZOLE
     Indication: BREAST CANCER
     Dosage: DAILY
     Route: 048
  7. CHEMOTHERAPY [Concomitant]
     Active Substance: UNSPECIFIED INGREDIENT
     Dates: start: 20140717

REACTIONS (8)
  - Cough [Unknown]
  - Intentional product misuse [Unknown]
  - Breast cancer [Unknown]
  - Rash [Unknown]
  - Lung disorder [Unknown]
  - Product use issue [Unknown]
  - Joint swelling [Unknown]
  - Off label use [Unknown]

NARRATIVE: CASE EVENT DATE: 2012
